FAERS Safety Report 8273257-7 (Version None)
Quarter: 2012Q2

REPORT INFORMATION
  Report Type: 
  Country: None (occurrence: None)
  Receive Date: 20120411
  Receipt Date: 20120329
  Transmission Date: 20120825
  Serious: Yes (Hospitalization)
  Sender: FDA-Public Use
  Company Number: JP-PFIZER INC-2012079532

PATIENT
  Age: 90 Year
  Sex: Female
  Weight: 44.8 kg

DRUGS (9)
  1. CELEBREX [Suspect]
     Indication: RHEUMATOID ARTHRITIS
     Dosage: 100 MG, TWICE DAILY
     Route: 048
     Dates: start: 20120207, end: 20120209
  2. INDERAL [Concomitant]
     Indication: HYPERLIPIDAEMIA
     Dosage: UNK
     Dates: start: 19920707
  3. MUCODYNE [Concomitant]
  4. PRAVASTATIN SODIUM [Concomitant]
     Indication: HYPERLIPIDAEMIA
     Dosage: UNK
     Dates: start: 19920707
  5. ALFAROL [Concomitant]
  6. TRITEREN [Concomitant]
     Indication: CARDIAC FAILURE
     Dosage: UNK
     Dates: start: 20111227
  7. ETIZOLAM [Concomitant]
  8. PRAVASTATIN SODIUM [Concomitant]
     Route: 048
  9. ZOLPIDEM [Suspect]
     Route: 048

REACTIONS (1)
  - MYOSITIS [None]
